FAERS Safety Report 5803922-X (Version None)
Quarter: 2008Q3

REPORT INFORMATION
  Report Type: 
  Country: None (occurrence: None)
  Receive Date: 20080703
  Receipt Date: 20080619
  Transmission Date: 20090109
  Serious: Yes (Hospitalization, Other)
  Sender: FDA-Public Use
  Company Number: ENT 2008-0055

PATIENT
  Age: 65 Year
  Sex: Female

DRUGS (6)
  1. COMTAN [Suspect]
     Indication: DRUG EFFECT DECREASED
     Dosage: 500 MG ORAL; 250 MG
     Route: 048
     Dates: start: 20070419, end: 20080301
  2. COMTAN [Suspect]
     Indication: DRUG EFFECT DECREASED
     Dosage: 500 MG ORAL; 250 MG
     Route: 048
     Dates: start: 20080301
  3. CARBIDOPA AND LEVODOPA [Concomitant]
  4. PRAMIPEXOLE DIHYDROCHLORIDE [Concomitant]
  5. PERMAX [Concomitant]
  6. SYMMETREL [Concomitant]

REACTIONS (4)
  - GENERAL PHYSICAL CONDITION ABNORMAL [None]
  - HEPATIC FUNCTION ABNORMAL [None]
  - INTERSTITIAL LUNG DISEASE [None]
  - VIRAL INFECTION [None]
